FAERS Safety Report 9693818 (Version 1)
Quarter: 2013Q4

REPORT INFORMATION
  Report Type: Spontaneous
  Country: AU (occurrence: AU)
  Receive Date: 20131118
  Receipt Date: 20131118
  Transmission Date: 20140711
  Serious: Yes (Other)
  Sender: FDA-Public Use
  Company Number: AU-ABBVIE-13P-008-1157815-00

PATIENT
  Sex: Male

DRUGS (6)
  1. EPILIM [Suspect]
     Indication: PRODUCT USED FOR UNKNOWN INDICATION
     Route: 065
  2. PARACETAMOL [Suspect]
     Indication: PRODUCT USED FOR UNKNOWN INDICATION
     Route: 065
  3. RISPERIDONE [Suspect]
     Indication: PRODUCT USED FOR UNKNOWN INDICATION
     Route: 065
  4. PARVOLEX [Suspect]
     Indication: PRODUCT USED FOR UNKNOWN INDICATION
     Route: 065
  5. ZYPREXA [Suspect]
     Indication: PRODUCT USED FOR UNKNOWN INDICATION
     Route: 065
  6. COGENTIN [Suspect]
     Indication: PRODUCT USED FOR UNKNOWN INDICATION
     Route: 065

REACTIONS (9)
  - Neuroleptic malignant syndrome [Unknown]
  - Hyperthermia malignant [Unknown]
  - Blood creatine phosphokinase increased [Unknown]
  - Blood pressure fluctuation [Unknown]
  - Hallucination [Unknown]
  - Pyrexia [Unknown]
  - Supraventricular tachycardia [Unknown]
  - Tremor [Unknown]
  - Agitation [Unknown]
